FAERS Safety Report 14285718 (Version 1)
Quarter: 2017Q4

REPORT INFORMATION
  Report Type: Report from Study
  Country: JP (occurrence: JP)
  Receive Date: 20171214
  Receipt Date: 20171214
  Transmission Date: 20180321
  Serious: Yes (Hospitalization)
  Sender: FDA-Public Use
  Company Number: JP-ACTELION-A-CH2017-163917

PATIENT
  Age: 41 Year
  Sex: Female

DRUGS (8)
  1. GASMOTIN [Concomitant]
     Active Substance: MOSAPRIDE CITRATE
  2. REVATIO [Concomitant]
     Active Substance: SILDENAFIL CITRATE
  3. NEXIUM [Concomitant]
     Active Substance: ESOMEPRAZOLE MAGNESIUM
  4. GASTER [Concomitant]
     Active Substance: FAMOTIDINE
  5. ULCERLMIN [Concomitant]
     Active Substance: SUCRALFATE
  6. BERASUS [Concomitant]
     Active Substance: BERAPROST SODIUM
  7. TRACLEER [Suspect]
     Active Substance: BOSENTAN
     Indication: SCLERODERMA ASSOCIATED DIGITAL ULCER
     Dosage: 62.5 MG, OD
     Route: 048
     Dates: start: 20151105
  8. TAKECAB [Concomitant]
     Active Substance: VONOPRAZAN FUMURATE

REACTIONS (2)
  - Epilepsy [Recovering/Resolving]
  - Loss of consciousness [Recovering/Resolving]

NARRATIVE: CASE EVENT DATE: 20170928
